FAERS Safety Report 12817312 (Version 1)
Quarter: 2016Q4

REPORT INFORMATION
  Report Type: Spontaneous
  Country: US (occurrence: US)
  Receive Date: 20161005
  Receipt Date: 20161005
  Transmission Date: 20170207
  Serious: Yes (Death)
  Sender: FDA-Public Use
  Company Number: None

PATIENT
  Age: 68 Year
  Sex: Female
  Weight: 101.25 kg

DRUGS (1)
  1. TIKOSYN [Suspect]
     Active Substance: DOFETILIDE
     Indication: HEART RATE IRREGULAR
     Dosage: ?          QUANTITY:60 TABLET(S);?
     Route: 048
     Dates: start: 20160312, end: 20160414

REACTIONS (1)
  - Therapeutic response decreased [None]

NARRATIVE: CASE EVENT DATE: 20160414
